FAERS Safety Report 5193886-7 (Version None)
Quarter: 2006Q4

REPORT INFORMATION
  Report Type: 
  Country: None (occurrence: None)
  Receive Date: 20061221
  Receipt Date: 20061208
  Transmission Date: 20070319
  Serious: Yes (Other)
  Sender: FDA-Public Use
  Company Number: 233653

PATIENT
  Sex: Female

DRUGS (1)
  1. MABTHERA ( RITUXIMAB) CONC FOR SOLUTION FOR INFUSION [Suspect]
     Indication: DRUG USE FOR UNKNOWN INDICATION
     Dates: start: 20061207, end: 20061207

REACTIONS (5)
  - ACCIDENTAL EXPOSURE [None]
  - EYE DISORDER [None]
  - NASAL CONGESTION [None]
  - PHARYNGEAL OEDEMA [None]
  - RASH [None]
